FAERS Safety Report 6165887-3 (Version None)
Quarter: 2009Q2

REPORT INFORMATION
  Report Type: 
  Country: None (occurrence: None)
  Receive Date: 20090422
  Receipt Date: 20090416
  Transmission Date: 20091009
  Serious: Yes (Life-Threatening)
  Sender: FDA-Public Use
  Company Number: 09GB000773

PATIENT
  Age: 69 Year

DRUGS (3)
  1. NAPROXEN SODIUM [Suspect]
     Indication: ARTHRITIS
     Dosage: 500 MG, BID, ORAL
     Route: 048
     Dates: start: 20061201, end: 20090401
  2. BENDROFLUMETHIAZIDE (BENDROFLUMETHIAZIDE) [Concomitant]
  3. ENAPRIL (ENALAPRIL) [Concomitant]

REACTIONS (2)
  - ABDOMINAL SEPSIS [None]
  - DUODENAL ULCER PERFORATION [None]
